FAERS Safety Report 6495950-9 (Version None)
Quarter: 2009Q4

REPORT INFORMATION
  Report Type: 
  Country: None (occurrence: None)
  Receive Date: 20091214
  Receipt Date: 20090921
  Transmission Date: 20100525
  Serious: No
  Sender: FDA-Public Use
  Company Number: US-BRISTOL-MYERS SQUIBB COMPANY-14765994

PATIENT
  Age: 72 Year
  Sex: Female

DRUGS (2)
  1. ABILIFY [Suspect]
     Indication: AGITATION
     Dosage: INITIAL DOSE:5MG
     Route: 048
     Dates: start: 20090701
  2. ABILIFY [Suspect]
     Indication: ANXIETY
     Dosage: INITIAL DOSE:5MG
     Route: 048
     Dates: start: 20090701

REACTIONS (2)
  - IRRITABILITY [None]
  - MOOD SWINGS [None]
